FAERS Safety Report 7096585-X (Version None)
Quarter: 2010Q4

REPORT INFORMATION
  Report Type: 
  Country: None (occurrence: None)
  Receive Date: 20101111
  Receipt Date: 20101104
  Transmission Date: 20110411
  Serious: Yes (Hospitalization)
  Sender: FDA-Public Use
  Company Number: B0683873A

PATIENT
  Sex: Male

DRUGS (2)
  1. LANOXIN [Suspect]
     Indication: ATRIAL FIBRILLATION
     Dosage: .75MG PER DAY
     Route: 048
     Dates: start: 20090620, end: 20090623
  2. COUMADIN [Suspect]
     Indication: ATRIAL FIBRILLATION
     Dosage: 5MG PER DAY
     Route: 048
     Dates: start: 20100620, end: 20100623

REACTIONS (3)
  - DIPLOPIA [None]
  - DIZZINESS [None]
  - HEADACHE [None]
